FAERS Safety Report 6211644-9 (Version None)
Quarter: 2009Q2

REPORT INFORMATION
  Report Type: 
  Country: None (occurrence: None)
  Receive Date: 20090522
  Receipt Date: 20090331
  Transmission Date: 20091009
  Serious: No
  Sender: FDA-Public Use
  Company Number: 8044441

PATIENT
  Sex: Female

DRUGS (9)
  1. CIMZIA [Suspect]
     Indication: CROHN'S DISEASE
     Dosage: 400 MG SC
     Route: 058
     Dates: start: 20090316
  2. OS-CAL [Concomitant]
  3. VITAMIN B-12 [Concomitant]
  4. HYDROCODONE BITARTRATE + ACETAMINOPHEN [Concomitant]
  5. MELOXICAM [Concomitant]
  6. KLOR-CON [Concomitant]
  7. PAXIL [Concomitant]
  8. AMLODIPINE [Concomitant]
  9. LISINOPRIL AND HYDROCHLOROTHIAZIDE [Concomitant]

REACTIONS (1)
  - MUSCULOSKELETAL PAIN [None]
